FAERS Safety Report 21191703 (Version 1)
Quarter: 2022Q3

REPORT INFORMATION
  Report Type: Spontaneous
  Country: HR (occurrence: HR)
  Receive Date: 20220809
  Receipt Date: 20220809
  Transmission Date: 20221026
  Serious: Yes (Other)
  Sender: FDA-Public Use
  Company Number: HR-JNJFOC-20220807150

PATIENT

DRUGS (4)
  1. IBRUTINIB [Interacting]
     Active Substance: IBRUTINIB
     Indication: Chronic lymphocytic leukaemia
     Route: 048
  2. IBRUTINIB [Interacting]
     Active Substance: IBRUTINIB
     Indication: Mantle cell lymphoma
  3. IBRUTINIB [Interacting]
     Active Substance: IBRUTINIB
     Indication: Waldenstrom^s macroglobulinaemia
  4. RIVAROXABAN [Suspect]
     Active Substance: RIVAROXABAN
     Indication: Product used for unknown indication
     Route: 065

REACTIONS (9)
  - Drug interaction [Unknown]
  - Atrial fibrillation [Unknown]
  - Sepsis [Unknown]
  - Pneumonia [Unknown]
  - Thrombocytopenia [Unknown]
  - Haemorrhage [Unknown]
  - Diarrhoea [Unknown]
  - Haematoma [Unknown]
  - Haematuria [Unknown]
